FAERS Safety Report 5843340-1 (Version None)
Quarter: 2008Q3

REPORT INFORMATION
  Report Type: 
  Country: None (occurrence: None)
  Receive Date: 20080812
  Receipt Date: 20080812
  Transmission Date: 20090109
  Serious: Yes (Other)
  Sender: FDA-Public Use
  Company Number: None

PATIENT
  Age: 60 Year
  Sex: Female

DRUGS (1)
  1. FORTEO [Suspect]
     Indication: OSTEOPOROSIS
     Dosage: 20 MCG DAILY SQ, 1 MONTH
     Route: 058
     Dates: start: 20080702, end: 20080810

REACTIONS (3)
  - BONE PAIN [None]
  - HYPERTENSION [None]
  - MYALGIA [None]
